FAERS Safety Report 9736601 (Version 1)
Quarter: 2013Q4

REPORT INFORMATION
  Report Type: Spontaneous
  Country: US (occurrence: US)
  Receive Date: 20131206
  Receipt Date: 20131206
  Transmission Date: 20140711
  Serious: No
  Sender: FDA-Public Use
  Company Number: US-BIOGENIDEC-2013BI098467

PATIENT
  Age: 52 Year
  Sex: Female

DRUGS (2)
  1. TECFIDERA [Suspect]
     Indication: MULTIPLE SCLEROSIS
     Route: 048
     Dates: start: 201307, end: 20130925
  2. TECFIDERA [Suspect]
     Indication: MULTIPLE SCLEROSIS
     Route: 048
     Dates: start: 20130928

REACTIONS (6)
  - Head injury [Unknown]
  - Fall [Recovered/Resolved]
  - Dizziness [Unknown]
  - Syncope [Unknown]
  - Intentional drug misuse [Not Recovered/Not Resolved]
  - Wrong technique in drug usage process [Unknown]
